FAERS Safety Report 11637599 (Version 1)
Quarter: 2015Q4

REPORT INFORMATION
  Report Type: Spontaneous
  Country: US (occurrence: US)
  Receive Date: 20151016
  Receipt Date: 20151016
  Transmission Date: 20160304
  Serious: No
  Sender: FDA-Public Use
  Company Number: US-TAKEDA-2015TUS014243

PATIENT
  Sex: Female
  Weight: 92.52 kg

DRUGS (1)
  1. CONTRAVE [Suspect]
     Active Substance: BUPROPION HYDROCHLORIDE\NALTREXONE HYDROCHLORIDE
     Indication: OBESITY
     Dosage: 8/90 MG, UNK
     Route: 048
     Dates: start: 20150709

REACTIONS (2)
  - Anxiety [Not Recovered/Not Resolved]
  - Appetite disorder [Not Recovered/Not Resolved]
